FAERS Safety Report 4805182-5 (Version None)
Quarter: 2005Q4

REPORT INFORMATION
  Report Type: 
  Country: None (occurrence: None)
  Receive Date: 20051017
  Receipt Date: 20051004
  Transmission Date: 20060501
  Serious: Yes (Hospitalization)
  Sender: FDA-Public Use
  Company Number: 200403207

PATIENT
  Age: 63 Year
  Sex: Female

DRUGS (5)
  1. BOTOX COSMETIC [Suspect]
     Indication: SKIN WRINKLING
     Dosage: 37.5 UNITS ONCE IM
     Route: 030
     Dates: start: 20040322
  2. BOTOX COSMETIC [Suspect]
     Indication: SKIN WRINKLING
     Dosage: 10 UNITS ONCE IM
     Route: 030
     Dates: start: 20040324
  3. SUDAFED 12 HOUR [Concomitant]
  4. ASPIRIN [Concomitant]
  5. DYAZIDE [Concomitant]

REACTIONS (36)
  - ABSCESS NECK [None]
  - BLEPHARITIS [None]
  - BRANCHIAL CLEFT CYST [None]
  - CONJUNCTIVAL HYPERAEMIA [None]
  - CONJUNCTIVAL OEDEMA [None]
  - CONJUNCTIVITIS [None]
  - CYST [None]
  - DACRYOSTENOSIS ACQUIRED [None]
  - DISCOMFORT [None]
  - EMOTIONAL DISORDER [None]
  - ERYTHEMA OF EYELID [None]
  - EYE IRRITATION [None]
  - EYE PAIN [None]
  - EYELID OEDEMA [None]
  - EYELID PTOSIS [None]
  - FOREIGN BODY IN EYE [None]
  - HYPERSENSITIVITY [None]
  - INJURY [None]
  - KERATOCONJUNCTIVITIS SICCA [None]
  - LACRIMATION INCREASED [None]
  - LOCAL SWELLING [None]
  - MEAN PLATELET VOLUME DECREASED [None]
  - MONOCYTE COUNT INCREASED [None]
  - OCULAR HYPERAEMIA [None]
  - PAIN [None]
  - READING DISORDER [None]
  - SALIVARY GLAND NEOPLASM [None]
  - SCAR [None]
  - SINUSITIS [None]
  - SKIN DISORDER [None]
  - SOFT TISSUE INFECTION [None]
  - SOFT TISSUE INFLAMMATION [None]
  - STAPHYLOCOCCAL INFECTION [None]
  - SWELLING FACE [None]
  - TUBERCULOSIS [None]
  - WHITE BLOOD CELL COUNT INCREASED [None]
